FAERS Safety Report 4305527-9 (Version None)
Quarter: 2004Q1

REPORT INFORMATION
  Report Type: 
  Country: None (occurrence: None)
  Receive Date: 20040226
  Receipt Date: 20031113
  Transmission Date: 20041129
  Serious: No
  Sender: FDA-Public Use
  Company Number: US-BRISTOL-MYERS SQUIBB COMPANY-12435392

PATIENT
  Age: 17 Year
  Sex: Male
  Weight: 77 kg

DRUGS (7)
  1. ABILIFY [Suspect]
     Indication: OBSESSIVE-COMPULSIVE DISORDER
     Dosage: DOSAGE NOT TAKEN ON 13-NOV-2003, DATE OF REPORT.
     Route: 048
     Dates: start: 20031030
  2. ABILIFY [Suspect]
     Indication: TOURETTE'S DISORDER
     Dosage: DOSAGE NOT TAKEN ON 13-NOV-2003, DATE OF REPORT.
     Route: 048
     Dates: start: 20031030
  3. DEPAKOTE [Concomitant]
  4. CELEXA [Concomitant]
  5. RISPERDAL [Concomitant]
  6. BENADRYL [Concomitant]
  7. ALBUTEROL [Concomitant]

REACTIONS (1)
  - STARING [None]
